FAERS Safety Report 12088845 (Version 5)
Quarter: 2020Q3

REPORT INFORMATION
  Report Type: Other
  Country: JP (occurrence: JP)
  Receive Date: 20160218
  Receipt Date: 20200724
  Transmission Date: 20201102
  Serious: Yes (Hospitalization)
  Sender: FDA-Public Use
  Company Number: JP-ROCHE-1685126

PATIENT
  Age: 14 Year
  Sex: Male
  Weight: 59.1 kg

DRUGS (19)
  1. PREDNISOLONE. [Suspect]
     Active Substance: PREDNISOLONE
     Indication: NEPHROTIC SYNDROME
     Dosage: 30?80 MG
     Route: 048
     Dates: start: 201409, end: 20150914
  2. TAVEGYL [Concomitant]
     Active Substance: CLEMASTINE FUMARATE
     Dosage: 300 MG/24 HOURS
     Route: 048
     Dates: start: 20150601, end: 20150601
  3. TAVEGYL [Concomitant]
     Active Substance: CLEMASTINE FUMARATE
     Dosage: 300 MG/24 HOURS
     Route: 048
     Dates: start: 20150518, end: 20150518
  4. TAVEGYL [Concomitant]
     Active Substance: CLEMASTINE FUMARATE
     Dosage: 300 MG/24 HOURS
     Route: 048
     Dates: start: 20150608, end: 20150608
  5. CALONAL [Concomitant]
     Active Substance: ACETAMINOPHEN
     Dosage: 1 MG/24 HOURS
     Route: 048
     Dates: start: 20150518, end: 20150518
  6. CALONAL [Concomitant]
     Active Substance: ACETAMINOPHEN
     Dosage: 1 MG/24 HOURS
     Route: 048
     Dates: start: 20150608, end: 20150608
  7. PERSANTIN [Concomitant]
     Active Substance: DIPYRIDAMOLE
     Indication: NEPHROTIC SYNDROME
     Route: 048
     Dates: start: 20140916
  8. CELLCEPT [Concomitant]
     Active Substance: MYCOPHENOLATE MOFETIL\MYCOPHENOLATE MOFETIL HYDROCHLORIDE
     Indication: NEPHROTIC SYNDROME
     Route: 048
     Dates: start: 20150430
  9. RITUXIMAB. [Suspect]
     Active Substance: RITUXIMAB
     Indication: NEPHROTIC SYNDROME
     Dosage: 375 MG/M2 TO 500 MG.
     Route: 041
     Dates: start: 20150518, end: 20150518
  10. DAIPHEN [Concomitant]
     Active Substance: SULFAMETHOXAZOLE\TRIMETHOPRIM
     Route: 048
     Dates: start: 20150518
  11. PREDNISOLONE. [Suspect]
     Active Substance: PREDNISOLONE
     Route: 048
     Dates: start: 20160527
  12. AMLODIPINE BESILATE [Concomitant]
     Active Substance: AMLODIPINE BESYLATE
     Route: 048
     Dates: start: 20150501
  13. TAVEGYL [Concomitant]
     Active Substance: CLEMASTINE FUMARATE
     Dosage: 300 MG/24 HOURS
     Route: 048
     Dates: start: 20150525, end: 20150525
  14. CALONAL [Concomitant]
     Active Substance: ACETAMINOPHEN
     Dosage: 1 MG/24 HOURS
     Route: 048
     Dates: start: 20150525, end: 20150525
  15. CALONAL [Concomitant]
     Active Substance: ACETAMINOPHEN
     Dosage: 1 MG/24 HOURS
     Route: 048
     Dates: start: 20150601, end: 20150601
  16. PREDNISOLONE. [Suspect]
     Active Substance: PREDNISOLONE
     Route: 048
     Dates: start: 20150603, end: 201509
  17. RITUXIMAB. [Suspect]
     Active Substance: RITUXIMAB
     Indication: NEPHROTIC SYNDROME
     Dosage: 50 MG/24 HOURS
     Route: 041
     Dates: start: 20150525, end: 20150525
  18. RITUXIMAB. [Suspect]
     Active Substance: RITUXIMAB
     Dosage: 50 MG/24 HOURS
     Route: 041
     Dates: start: 20150601, end: 20150601
  19. RITUXIMAB. [Suspect]
     Active Substance: RITUXIMAB
     Dosage: 50 MG/24 HOURS
     Route: 041
     Dates: start: 20150608, end: 20150608

REACTIONS (2)
  - Hypogammaglobulinaemia [Recovered/Resolved]
  - Osteonecrosis [Recovered/Resolved]

NARRATIVE: CASE EVENT DATE: 201505
